FAERS Safety Report 17220428 (Version 1)
Quarter: 2019Q4

REPORT INFORMATION
  Report Type: Spontaneous
  Country: US (occurrence: US)
  Receive Date: 20191231
  Receipt Date: 20191231
  Transmission Date: 20200122
  Serious: No
  Sender: FDA-Public Use
  Company Number: NVSC2019US082139

PATIENT
  Age: 29 Year
  Sex: Male

DRUGS (3)
  1. MAALOX ANTACID [Suspect]
     Active Substance: ALUMINUM HYDROXIDE\DIMETHICONE\MAGNESIUM HYDROXIDE
     Indication: GASTROENTERITIS
     Dosage: 30 ML
     Route: 048
  2. PEPCID [Suspect]
     Active Substance: FAMOTIDINE
     Indication: GASTROENTERITIS
     Dosage: 20 MG
     Route: 042
  3. ZOFRAN [Suspect]
     Active Substance: ONDANSETRON HYDROCHLORIDE
     Indication: GASTROENTERITIS
     Dosage: 4 MG
     Route: 042

REACTIONS (1)
  - Drug ineffective [Unknown]
